FAERS Safety Report 5874259-8 (Version None)
Quarter: 2008Q3

REPORT INFORMATION
  Report Type: 
  Country: None (occurrence: None)
  Receive Date: 20080908
  Receipt Date: 20080825
  Transmission Date: 20090109
  Serious: Yes (Other)
  Sender: FDA-Public Use
  Company Number: US-ELI_LILLY_AND_COMPANY-US200808004886

PATIENT
  Sex: Male

DRUGS (3)
  1. GEMZAR [Suspect]
     Indication: LUNG NEOPLASM MALIGNANT
     Dates: start: 20080805
  2. AVASTIN [Concomitant]
     Indication: LUNG NEOPLASM MALIGNANT
     Dates: start: 20080805
  3. CARBOPLATIN [Concomitant]
     Indication: LUNG NEOPLASM MALIGNANT
     Dates: start: 20080805

REACTIONS (3)
  - DYSPHAGIA [None]
  - IMPAIRED HEALING [None]
  - OESOPHAGEAL ULCER [None]
